FAERS Safety Report 9406613 (Version 1)
Quarter: 2013Q3

REPORT INFORMATION
  Report Type: Other
  Country: US (occurrence: US)
  Receive Date: 20130718
  Receipt Date: 20130718
  Transmission Date: 20140515
  Serious: Yes (Other)
  Sender: FDA-Public Use
  Company Number: US-ACTELION-A-CH2013-85700

PATIENT
  Age: 32 Year
  Sex: Female

DRUGS (1)
  1. TRACLEER [Suspect]
     Indication: ARTERIOSPASM CORONARY
     Route: 048

REACTIONS (3)
  - Coronary artery stenosis [Unknown]
  - Cardiogenic shock [Unknown]
  - Heart transplant [Unknown]
